FAERS Safety Report 9320405 (Version 2)
Quarter: 2013Q4

REPORT INFORMATION
  Report Type: Spontaneous
  Country: US (occurrence: US)
  Receive Date: 20130530
  Receipt Date: 20131011
  Transmission Date: 20140711
  Serious: Yes (Hospitalization)
  Sender: FDA-Public Use
  Company Number: US-B.I. PHARMACEUTICALS,INC./RIDGEFIELD-2013-BI-14566BP

PATIENT
  Age: 72 Year
  Sex: Male
  Weight: 92.99 kg

DRUGS (9)
  1. CRESTOR [Concomitant]
     Dosage: 5 MG
     Route: 048
  2. ASPIRIN [Concomitant]
     Dosage: 81 MG
     Route: 048
  3. ZOLOFT [Concomitant]
     Dosage: 50 MG
     Route: 048
  4. XANAX [Concomitant]
     Dosage: 12.5 MG
     Route: 048
  5. LASIX [Concomitant]
     Dosage: 20 MG
     Route: 048
  6. MULTAQ [Concomitant]
     Indication: ATRIAL FIBRILLATION
     Dosage: 80 MG
  7. PRADAXA [Suspect]
     Indication: ATRIAL FIBRILLATION
     Dosage: 300 MG
     Route: 048
     Dates: start: 20110118, end: 20110624
  8. TOPROL XL [Concomitant]
     Dosage: 100 MG
  9. PROSCAR [Concomitant]
     Dosage: 5 MG
     Route: 048

REACTIONS (5)
  - Syncope [Unknown]
  - Gastrointestinal haemorrhage [Unknown]
  - Haemorrhagic anaemia [Unknown]
  - Pancreatitis acute [Unknown]
  - Hepatic enzyme increased [Unknown]
